FAERS Safety Report 4822239-3 (Version None)
Quarter: 2005Q4

REPORT INFORMATION
  Report Type: 
  Country: None (occurrence: None)
  Receive Date: 20051103
  Receipt Date: 20051014
  Transmission Date: 20060501
  Serious: Yes (Other)
  Sender: FDA-Public Use
  Company Number: USA050495515

PATIENT
  Age: 40 Year
  Sex: Male
  Weight: 68 kg

DRUGS (4)
  1. HUMULIN R [Suspect]
     Indication: DIABETES MELLITUS
     Dates: start: 19900101
  2. HUMULIN N [Suspect]
     Indication: DIABETES MELLITUS
     Dosage: 20 U/1 DAY
     Dates: start: 19900101
  3. REGULAR ILETIN II [Suspect]
     Dates: start: 19710101, end: 19900101
  4. NPH ILETIN I (BEEF-PORK) [Suspect]
     Dates: start: 19710101, end: 19900101

REACTIONS (5)
  - HEADACHE [None]
  - INJECTION SITE PAIN [None]
  - PHARMACEUTICAL PRODUCT COMPLAINT [None]
  - RETINOPATHY [None]
  - SCOTOMA [None]
